FAERS Safety Report 6509502-5 (Version None)
Quarter: 2009Q4

REPORT INFORMATION
  Report Type: 
  Country: None (occurrence: None)
  Receive Date: 20091222
  Receipt Date: 20091217
  Transmission Date: 20100525
  Serious: Yes (Hospitalization)
  Sender: FDA-Public Use
  Company Number: US-BRISTOL-MYERS SQUIBB COMPANY-14898738

PATIENT
  Age: 67 Year
  Sex: Female
  Weight: 73 kg

DRUGS (1)
  1. ORENCIA [Suspect]
     Indication: RHEUMATOID ARTHRITIS
     Dosage: THERAPY DURATION: FOR ABOUT 3 YEARS

REACTIONS (3)
  - CEREBRAL HAEMORRHAGE [None]
  - FALL [None]
  - FRACTURE [None]
